FAERS Safety Report 6565048-X (Version None)
Quarter: 2010Q1

REPORT INFORMATION
  Report Type: 
  Country: None (occurrence: None)
  Receive Date: 20100201
  Receipt Date: 20100129
  Transmission Date: 20100710
  Serious: Yes (Other)
  Sender: FDA-Public Use
  Company Number: B0629088A

PATIENT
  Sex: Female

DRUGS (1)
  1. DUAC [Suspect]
     Indication: DRUG USE FOR UNKNOWN INDICATION
     Route: 061
     Dates: start: 20091121, end: 20091122

REACTIONS (3)
  - PRURITUS [None]
  - RASH MACULAR [None]
  - URTICARIA [None]
